FAERS Safety Report 10829238 (Version 3)
Quarter: 2015Q3

REPORT INFORMATION
  Report Type: Spontaneous
  Country: US (occurrence: US)
  Receive Date: 20150219
  Receipt Date: 20150803
  Transmission Date: 20151125
  Serious: Yes (Hospitalization, Other)
  Sender: FDA-Public Use
  Company Number: US-BAYER-2015-023840

PATIENT
  Age: 19 Year
  Sex: Female
  Weight: 111.11 kg

DRUGS (1)
  1. GIANVI [Suspect]
     Active Substance: DROSPIRENONE\ETHINYL ESTRADIOL
     Dosage: UNK
     Dates: start: 201111, end: 20120105

REACTIONS (5)
  - Injury [None]
  - Transverse sinus thrombosis [None]
  - Cerebrovascular accident [None]
  - Cerebral infarction [None]
  - Pain [None]

NARRATIVE: CASE EVENT DATE: 20120107
